FAERS Safety Report 12109452 (Version 3)
Quarter: 2016Q1

REPORT INFORMATION
  Report Type: Spontaneous
  Country: NL (occurrence: NL)
  Receive Date: 20160224
  Receipt Date: 20160316
  Transmission Date: 20160526
  Serious: Yes (Death, Other)
  Sender: FDA-Public Use
  Company Number: NL-ASTELLAS-2016US006399

PATIENT
  Age: 63 Year
  Sex: Male

DRUGS (4)
  1. XTANDI [Suspect]
     Active Substance: ENZALUTAMIDE
     Indication: METASTATIC NEOPLASM
     Dosage: 160 MG, IN THE EVENING
     Route: 048
  2. OXYCONTIN [Concomitant]
     Active Substance: OXYCODONE HYDROCHLORIDE
     Indication: PAIN
     Dosage: UNK UNK, UNKNOWN FREQ.
     Route: 065
  3. PANADOL                            /00020001/ [Concomitant]
     Indication: PAIN
     Dosage: 1000 (UNSPECIFIED DETAILS) UNKNOWN FREQ.
     Route: 065
  4. CARBAMAZEPINE. [Concomitant]
     Active Substance: CARBAMAZEPINE
     Indication: EPILEPSY
     Dosage: UNK UNK, UNKNOWN FREQ.
     Route: 065

REACTIONS (5)
  - Death [Fatal]
  - Paraplegia [Unknown]
  - Off label use [Unknown]
  - Drug ineffective [Unknown]
  - Decubitus ulcer [Unknown]

NARRATIVE: CASE EVENT DATE: 201602
